FAERS Safety Report 11867918 (Version 1)
Quarter: 2015Q4

REPORT INFORMATION
  Report Type: Spontaneous
  Country: IT (occurrence: IT)
  Receive Date: 20151224
  Receipt Date: 20151224
  Transmission Date: 20160305
  Serious: Yes (Other)
  Sender: FDA-Public Use
  Company Number: IT-SA-2015SA214545

PATIENT
  Age: 46 Year
  Sex: Male

DRUGS (3)
  1. LANTUS [Suspect]
     Active Substance: INSULIN GLARGINE
     Indication: DIABETES MELLITUS
     Dosage: DOSE:36 UNIT(S)
     Route: 058
  2. NOVORAPID [Suspect]
     Active Substance: INSULIN ASPART
     Indication: DIABETES MELLITUS
     Dosage: 100 U / ML SOLUTION FOR SUBCUTANEOUS USE DOSE:44 UNIT(S)
     Route: 058
  3. FLEXPEN [Concomitant]
     Active Substance: UNSPECIFIED INGREDIENT
     Indication: DIABETES MELLITUS

REACTIONS (5)
  - Hypoglycaemia [Recovering/Resolving]
  - Feeling hot [Recovering/Resolving]
  - Hyperhidrosis [Recovering/Resolving]
  - Loss of consciousness [Recovering/Resolving]
  - Syncope [Recovering/Resolving]

NARRATIVE: CASE EVENT DATE: 20151122
